FAERS Safety Report 7729895-0 (Version None)
Quarter: 2011Q3

REPORT INFORMATION
  Report Type: 
  Country: None (occurrence: None)
  Receive Date: 20110817
  Receipt Date: 20110531
  Transmission Date: 20111222
  Serious: Yes (Hospitalization, Other)
  Sender: FDA-Public Use
  Company Number: 201110480

PATIENT
  Sex: Female

DRUGS (3)
  1. ATIVAN [Concomitant]
  2. LIORESAL [Suspect]
     Indication: MUSCLE SPASTICITY
     Dosage: 1078 MCG, DAILY, INTRATHECAL
     Route: 037
  3. ORAL BACLOFEN [Concomitant]

REACTIONS (3)
  - MUSCLE SPASTICITY [None]
  - DRUG WITHDRAWAL SYNDROME [None]
  - HOSPITALISATION [None]
